FAERS Safety Report 5685667-2 (Version None)
Quarter: 2008Q1

REPORT INFORMATION
  Report Type: 
  Country: None (occurrence: None)
  Receive Date: 20080328
  Receipt Date: 20080225
  Transmission Date: 20080703
  Serious: No
  Sender: FDA-Public Use
  Company Number: US-BAYER-200814852NA

PATIENT
  Age: 50 Year
  Sex: Male

DRUGS (3)
  1. LEVITRA [Suspect]
     Indication: DRUG USE FOR UNKNOWN INDICATION
     Route: 048
  2. LEVITRA [Suspect]
     Route: 048
  3. UNKNOWN ANTI CHOLESTEROL MEDICATION [Concomitant]

REACTIONS (3)
  - GASTROOESOPHAGEAL REFLUX DISEASE [None]
  - HICCUPS [None]
  - STOMACH DISCOMFORT [None]
